FAERS Safety Report 8902091 (Version 1)
Quarter: 2012Q4

REPORT INFORMATION
  Report Type: Report from Study
  Country: CA (occurrence: CA)
  Receive Date: 20121112
  Receipt Date: 20121112
  Transmission Date: 20130627
  Serious: Yes (Other)
  Sender: FDA-Public Use
  Company Number: CA-JNJFOC-20121102115

PATIENT
  Sex: Female
  Weight: 58 kg

DRUGS (6)
  1. REMICADE [Suspect]
     Indication: CROHN^S DISEASE
     Route: 042
     Dates: start: 20080307
  2. CIPRALEX [Concomitant]
     Dosage: dose - 10
     Route: 065
  3. ACTONEL [Concomitant]
     Dosage: dose: 35/week
     Route: 065
  4. CALCIUM W/ D [Concomitant]
     Dosage: dose: 500/400
     Route: 065
  5. FOLIC ACID [Concomitant]
     Dosage: dose - 5
     Route: 065
  6. VITAMIN B12 [Concomitant]
     Route: 030

REACTIONS (1)
  - Oesophageal candidiasis [Not Recovered/Not Resolved]
